FAERS Safety Report 15275013 (Version 1)
Quarter: 2018Q3

REPORT INFORMATION
  Report Type: Spontaneous
  Country: US (occurrence: US)
  Receive Date: 20180814
  Receipt Date: 20180814
  Transmission Date: 20181010
  Serious: No
  Sender: FDA-Public Use
  Company Number: US-PFIZER INC-2018324358

PATIENT
  Age: 56 Year
  Sex: Female

DRUGS (2)
  1. ADVIL [Suspect]
     Active Substance: IBUPROFEN
     Dosage: UNK
  2. PROVIGIL [Suspect]
     Active Substance: MODAFINIL
     Dosage: UNK

REACTIONS (1)
  - Drug hypersensitivity [Unknown]
